FAERS Safety Report 19085657 (Version 2)
Quarter: 2021Q2

REPORT INFORMATION
  Report Type: Report from Study
  Country: DE (occurrence: DE)
  Receive Date: 20210401
  Receipt Date: 20210429
  Transmission Date: 20210717
  Serious: Yes (Other)
  Sender: FDA-Public Use
  Company Number: DE-SUN PHARMACEUTICAL INDUSTRIES LTD-2020RR-269245

PATIENT
  Age: 74 Year
  Sex: Female

DRUGS (1)
  1. ODOMZO [Suspect]
     Active Substance: SONIDEGIB
     Indication: BASAL CELL CARCINOMA
     Dosage: 200 MILLIGRAM, DAILY
     Route: 048
     Dates: start: 20200623, end: 20201110

REACTIONS (12)
  - Blood electrolytes abnormal [Unknown]
  - Urinary casts [Unknown]
  - Haemoglobin urine [Unknown]
  - Hypocalcaemia [Unknown]
  - Endocrine disorder [Unknown]
  - Muscle spasms [Unknown]
  - Blood urea abnormal [Unknown]
  - Blood creatinine increased [Recovered/Resolved]
  - Myoglobinuria [Unknown]
  - Hyperkalaemia [Unknown]
  - Renal failure [Unknown]
  - Blood creatinine abnormal [Unknown]

NARRATIVE: CASE EVENT DATE: 20201110
